FAERS Safety Report 19418888 (Version 2)
Quarter: 2021Q3

REPORT INFORMATION
  Report Type: Spontaneous
  Country: JP (occurrence: JP)
  Receive Date: 20210615
  Receipt Date: 20210916
  Transmission Date: 20211014
  Serious: Yes (Other)
  Sender: FDA-Public Use
  Company Number: JP-AMGEN-JPNSP2021089883

PATIENT
  Sex: Female

DRUGS (1)
  1. EVENITY [Suspect]
     Active Substance: ROMOSOZUMAB-AQQG
     Indication: OSTEOPOROSIS POSTMENOPAUSAL
     Dosage: 210 MILLIGRAM, QMO
     Route: 058

REACTIONS (14)
  - Tibia fracture [Unknown]
  - Blood pressure increased [Unknown]
  - Injection site pain [Unknown]
  - Fatigue [Unknown]
  - Injection site erythema [Unknown]
  - Injection site swelling [Unknown]
  - Breast cancer [Unknown]
  - Fibula fracture [Unknown]
  - Therapeutic product effect incomplete [Unknown]
  - Thoracic vertebral fracture [Unknown]
  - Feeling abnormal [Unknown]
  - Injection site pruritus [Unknown]
  - Sensory loss [Unknown]
  - Lumbar vertebral fracture [Unknown]
